FAERS Safety Report 20884684 (Version 1)
Quarter: 2022Q2

REPORT INFORMATION
  Report Type: Spontaneous
  Country: CN (occurrence: CN)
  Receive Date: 20220527
  Receipt Date: 20220527
  Transmission Date: 20220721
  Serious: Yes (Other)
  Sender: FDA-Public Use
  Company Number: CN-PFIZER INC-202200757060

PATIENT
  Age: 52 Year
  Sex: Male

DRUGS (2)
  1. LINEZOLID [Suspect]
     Active Substance: LINEZOLID
     Indication: Infection
     Dosage: 300 ML, 2X/DAY
     Route: 041
     Dates: start: 20220511, end: 20220516
  2. MEROPENEM [Concomitant]
     Active Substance: MEROPENEM
     Dosage: 1.0 G, 3X/DAY
     Route: 042
     Dates: start: 202205

REACTIONS (2)
  - Blood bilirubin increased [Recovering/Resolving]
  - Liver injury [Recovering/Resolving]

NARRATIVE: CASE EVENT DATE: 20220516
